FAERS Safety Report 6549805-1 (Version None)
Quarter: 2010Q1

REPORT INFORMATION
  Report Type: 
  Country: None (occurrence: None)
  Receive Date: 20100119
  Receipt Date: 20100106
  Transmission Date: 20100710
  Serious: Yes (Hospitalization)
  Sender: FDA-Public Use
  Company Number: 004162

PATIENT

DRUGS (1)
  1. PREDNISOLONE [Suspect]
     Indication: WEGENER'S GRANULOMATOSIS
     Dosage: (5 - 30 MG DAILY), (5 - 25 MG DAILY)

REACTIONS (1)
  - PNEUMONIA [None]
